FAERS Safety Report 7146418-8 (Version None)
Quarter: 2010Q4

REPORT INFORMATION
  Report Type: 
  Country: None (occurrence: None)
  Receive Date: 20101208
  Receipt Date: 20100802
  Transmission Date: 20110411
  Serious: No
  Sender: FDA-Public Use
  Company Number: US-BRISTOL-MYERS SQUIBB COMPANY-15216765

PATIENT
  Age: 54 Year
  Sex: Male
  Weight: 121 kg

DRUGS (1)
  1. PRAVACHOL [Suspect]
     Dates: end: 20100728

REACTIONS (4)
  - DYSURIA [None]
  - IRRITABILITY [None]
  - MOOD SWINGS [None]
  - TESTICULAR SWELLING [None]
